FAERS Safety Report 4614389-1 (Version None)
Quarter: 2005Q1

REPORT INFORMATION
  Report Type: 
  Country: None (occurrence: None)
  Receive Date: 20050315
  Receipt Date: 20050228
  Transmission Date: 20050727
  Serious: Yes (Other)
  Sender: FDA-Public Use
  Company Number: 8009242

PATIENT
  Age: 46 Year
  Sex: Male
  Weight: 83 kg

DRUGS (6)
  1. KEPPRA [Suspect]
     Indication: CONVULSION
     Dosage: 1000 MG / D PO
     Route: 048
     Dates: start: 20040217
  2. KEPPRA [Suspect]
     Indication: CONVULSION
     Dosage: 2000 MG /D PO
     Route: 048
     Dates: start: 20040408
  3. KEPPRA [Suspect]
     Indication: CONVULSION
     Dosage: 3000 MG /D PO
     Route: 048
     Dates: start: 20040101
  4. CARBAMAZEPINE [Suspect]
     Indication: CONVULSION
     Dosage: 1200 MG /D PO
     Route: 048
     Dates: end: 20040101
  5. CARBAMAZEPINE [Suspect]
     Indication: CONVULSION
     Dosage: 600 MG /D PO
     Route: 048
     Dates: start: 20040101
  6. SABRIL [Concomitant]

REACTIONS (2)
  - FATIGUE [None]
  - WHITE BLOOD CELL COUNT DECREASED [None]
